FAERS Safety Report 25134223 (Version 1)
Quarter: 2025Q1

REPORT INFORMATION
  Report Type: Report from Study
  Country: CA (occurrence: CA)
  Receive Date: 20250328
  Receipt Date: 20250328
  Transmission Date: 20250408
  Serious: Yes (Hospitalization, Other)
  Sender: GLAXOSMITHKLINE
  Company Number: CA-GSK-CA2025031449

PATIENT

DRUGS (3)
  1. MOMELOTINIB [Suspect]
     Active Substance: MOMELOTINIB
     Indication: Myelofibrosis
     Dosage: 200 MG, QD
     Route: 048
     Dates: start: 20250226
  2. MOMELOTINIB [Suspect]
     Active Substance: MOMELOTINIB
     Dosage: 100 MG, QD
     Route: 048
     Dates: start: 20250318
  3. SYNTHROID [Concomitant]
     Active Substance: LEVOTHYROXINE SODIUM
     Indication: Product used for unknown indication

REACTIONS (2)
  - Dehydration [Unknown]
  - Thrombosis [Unknown]

NARRATIVE: CASE EVENT DATE: 20250227
